FAERS Safety Report 25412793 (Version 2)
Quarter: 2025Q2

REPORT INFORMATION
  Report Type: Report from Study
  Country: US (occurrence: US)
  Receive Date: 20250609
  Receipt Date: 20250627
  Transmission Date: 20250717
  Serious: Yes (Life-Threatening)
  Sender: TAKEDA
  Company Number: US-TAKEDA-2025TUS003020

PATIENT
  Sex: Female
  Weight: 52 kg

DRUGS (28)
  1. HUMAN IMMUNOGLOBULIN G [Suspect]
     Active Substance: HUMAN IMMUNOGLOBULIN G
     Indication: Immunodeficiency common variable
     Dosage: 20 GRAM, Q4WEEKS
     Dates: start: 20130328
  2. SIMPONI ARIA [Suspect]
     Active Substance: GOLIMUMAB
     Indication: Product used for unknown indication
  3. EPINEPHRINE [Concomitant]
     Active Substance: EPINEPHRINE
  4. ACETAMINOPHEN [Concomitant]
     Active Substance: ACETAMINOPHEN
  5. CALCIUM\VITAMIN D [Concomitant]
     Active Substance: CALCIUM\VITAMIN D
  6. ALIGN [Concomitant]
     Active Substance: BIFIDOBACTERIUM LONGUM SUBSP. INFANTIS
  7. MIRALAX [Concomitant]
     Active Substance: POLYETHYLENE GLYCOL 3350
  8. SODIUM CHLORIDE [Concomitant]
     Active Substance: SODIUM CHLORIDE
  9. DESLORATADINE [Concomitant]
     Active Substance: DESLORATADINE
  10. CYANOCOBALAMIN [Concomitant]
     Active Substance: CYANOCOBALAMIN
  11. BIOTIN [Concomitant]
     Active Substance: BIOTIN
  12. TOPIRAMATE [Concomitant]
     Active Substance: TOPIRAMATE
  13. VITAMIN D3 [Concomitant]
     Active Substance: CHOLECALCIFEROL
  14. LIDOCAINE [Concomitant]
     Active Substance: LIDOCAINE
  15. DIATRIZOATE MEGLUMINE [Concomitant]
     Active Substance: DIATRIZOATE MEGLUMINE
  16. FLUTICASONE PROPIONATE [Concomitant]
     Active Substance: FLUTICASONE PROPIONATE
  17. FAMOTIDINE [Concomitant]
     Active Substance: FAMOTIDINE
  18. TRAMADOL HCL [Concomitant]
     Active Substance: TRAMADOL HYDROCHLORIDE
  19. MAGNESIUM [Concomitant]
     Active Substance: MAGNESIUM
  20. VITAMIN C [Concomitant]
     Active Substance: ASCORBIC ACID
  21. PATANASE [Concomitant]
     Active Substance: OLOPATADINE HYDROCHLORIDE
  22. NIACINAMIDE [Concomitant]
     Active Substance: NIACINAMIDE
  23. DIPHENHYDRAMINE HYDROCHLORIDE [Concomitant]
     Active Substance: DIPHENHYDRAMINE HYDROCHLORIDE
  24. ALPHA LIPOIC ACID [Concomitant]
     Active Substance: .ALPHA.-LIPOIC ACID
  25. METAXALONE [Concomitant]
     Active Substance: METAXALONE
  26. COLLAGEN [Concomitant]
     Active Substance: COLLAGEN
  27. BUTRANS [Concomitant]
     Active Substance: BUPRENORPHINE
  28. ORENCIA [Concomitant]
     Active Substance: ABATACEPT

REACTIONS (7)
  - Pathogen resistance [Unknown]
  - Respiratory tract infection [Unknown]
  - Localised infection [Unknown]
  - Escherichia infection [Unknown]
  - Staphylococcal infection [Unknown]
  - Sinusitis [Unknown]
  - Upper respiratory tract infection [Unknown]
